FAERS Safety Report 16976406 (Version 1)
Quarter: 2019Q4

REPORT INFORMATION
  Report Type: Spontaneous
  Country: US (occurrence: US)
  Receive Date: 20190913
  Receipt Date: 20190913
  Transmission Date: 20200122
  Serious: Yes (Hospitalization)
  Sender: FDA-Public Use
  Company Number: None

PATIENT
  Age: 37 Year
  Sex: Female
  Weight: 158.8 kg

DRUGS (6)
  1. VINCRISTINE SULFATE. [Suspect]
     Active Substance: VINCRISTINE SULFATE
     Dates: end: 20190905
  2. DEXAMETHASONE. [Suspect]
     Active Substance: DEXAMETHASONE
     Dosage: ?          OTHER DOSE:154.8MG;?
     Dates: end: 20190905
  3. CYTARABINE. [Suspect]
     Active Substance: CYTARABINE
     Dates: end: 20190829
  4. METHOTREXATE. [Suspect]
     Active Substance: METHOTREXATE
     Dosage: ?          OTHER DOSE:1.5MG;?
     Dates: end: 20190905
  5. DAUNORUBICIN [Suspect]
     Active Substance: DAUNORUBICIN
     Dates: end: 20190905
  6. ONCASPAR [Suspect]
     Active Substance: PEGASPARGASE

REACTIONS (2)
  - Blood culture positive [None]
  - Febrile neutropenia [None]

NARRATIVE: CASE EVENT DATE: 20190905
